FAERS Safety Report 5801743-5 (Version None)
Quarter: 2008Q3

REPORT INFORMATION
  Report Type: 
  Country: None (occurrence: None)
  Receive Date: 20080707
  Receipt Date: 20080702
  Transmission Date: 20090109
  Serious: Yes (Hospitalization)
  Sender: FDA-Public Use
  Company Number: D0057938A

PATIENT
  Sex: Male

DRUGS (1)
  1. VIANI [Suspect]
     Indication: ASTHMA
     Route: 055

REACTIONS (1)
  - TUBERCULOSIS [None]
